FAERS Safety Report 9391586 (Version 1)
Quarter: 2013Q3

REPORT INFORMATION
  Report Type: Spontaneous
  Country: US (occurrence: US)
  Receive Date: 20130709
  Receipt Date: 20130709
  Transmission Date: 20140515
  Serious: Yes (Hospitalization)
  Sender: FDA-Public Use
  Company Number: US-GLAXOSMITHKLINE-A0789321A

PATIENT
  Age: 67 Year
  Sex: Male

DRUGS (1)
  1. ROSIGLITAZONE MALEATE [Suspect]
     Indication: DIABETES MELLITUS
     Dosage: 4MG PER DAY
     Route: 048
     Dates: start: 20011110, end: 20070510

REACTIONS (4)
  - Cerebrovascular accident [Not Recovered/Not Resolved]
  - Paralysis [Unknown]
  - Visual acuity reduced [Unknown]
  - Memory impairment [Unknown]
